FAERS Safety Report 22370185 (Version 1)
Quarter: 2023Q2

REPORT INFORMATION
  Report Type: Report from Study
  Country: MX (occurrence: MX)
  Receive Date: 20230526
  Receipt Date: 20230526
  Transmission Date: 20230722
  Serious: Yes (Death, Life-Threatening, Hospitalization, Other)
  Sender: FDA-Public Use
  Company Number: MX-002147023-NVSC2023MX043768

PATIENT
  Sex: Male

DRUGS (1)
  1. TASIGNA [Suspect]
     Active Substance: NILOTINIB
     Indication: Chronic myeloid leukaemia
     Dosage: UNK (STOP DATE: THIS MONTH)
     Route: 048

REACTIONS (7)
  - Death [Fatal]
  - Blast crisis in myelogenous leukaemia [Not Recovered/Not Resolved]
  - Renal failure [Unknown]
  - Pancytopenia [Unknown]
  - Myelofibrosis [Unknown]
  - Platelet count increased [Unknown]
  - White blood cell count increased [Unknown]
